FAERS Safety Report 9527060 (Version 1)
Quarter: 2013Q3

REPORT INFORMATION
  Report Type: Report from Study
  Country: US (occurrence: US)
  Receive Date: 20130916
  Receipt Date: 20130916
  Transmission Date: 20140515
  Serious: Yes (Hospitalization)
  Sender: FDA-Public Use
  Company Number: US-ROCHE-1276166

PATIENT
  Age: 82 Year
  Sex: Female

DRUGS (5)
  1. LUCENTIS [Suspect]
     Indication: EYE HAEMORRHAGE
     Route: 050
     Dates: end: 201303
  2. PRILOSEC [Concomitant]
  3. CYMBALTA [Concomitant]
  4. FERRO-SEQUELS [Concomitant]
  5. VITAMIN D3 [Concomitant]
     Route: 048

REACTIONS (1)
  - Loss of consciousness [Unknown]
